FAERS Safety Report 7074794-3 (Version None)
Quarter: 2010Q4

REPORT INFORMATION
  Report Type: 
  Country: None (occurrence: None)
  Receive Date: 20101029
  Receipt Date: 20101025
  Transmission Date: 20110411
  Serious: Yes (Death)
  Sender: FDA-Public Use
  Company Number: DE-ABBOTT-10P-062-0656951-00

PATIENT
  Sex: Male
  Weight: 84.5 kg

DRUGS (8)
  1. ZEMPLAR [Suspect]
     Indication: HYPERPARATHYROIDISM SECONDARY
     Dosage: 3X/WK EVERY 3 WEEKS
     Route: 042
     Dates: start: 20100426, end: 20100623
  2. DREISAVIT [Concomitant]
     Dosage: 1 DAY
     Route: 048
  3. DELIX [Concomitant]
     Dosage: 1 DAY
  4. ASPIRIN [Concomitant]
     Dosage: 1 DAY
     Route: 048
     Dates: start: 20090921
  5. DIGIMERCK [Concomitant]
     Dosage: 1 DAY
     Dates: start: 20100205
  6. LYRICA [Concomitant]
     Dosage: 2 DAYS
     Route: 048
     Dates: start: 20100621
  7. FERRLECIT [Concomitant]
     Dosage: 2 WEEKS
     Route: 042
  8. PHOSPHATE BINDER [Concomitant]
     Route: 048

REACTIONS (3)
  - CARDIAC FAILURE ACUTE [None]
  - LEUKOPENIA [None]
  - METASTATIC BRONCHIAL CARCINOMA [None]
